FAERS Safety Report 19606252 (Version 2)
Quarter: 2023Q2

REPORT INFORMATION
  Report Type: Spontaneous
  Country: US (occurrence: US)
  Receive Date: 20210725
  Receipt Date: 20230609
  Transmission Date: 20230722
  Serious: Yes (Hospitalization, Other)
  Sender: FDA-Public Use
  Company Number: US-MLMSERVICE-20210708-2985317-1

PATIENT
  Age: 9 Year
  Sex: Female
  Weight: 48 kg

DRUGS (2)
  1. RISPERIDONE [Suspect]
     Active Substance: RISPERIDONE
     Indication: Oppositional defiant disorder
     Dosage: UNKNOWN
     Route: 065
  2. CITALOPRAM [Concomitant]
     Active Substance: CITALOPRAM HYDROBROMIDE
     Indication: Attention deficit hyperactivity disorder
     Dosage: UNKNOWN
     Route: 065

REACTIONS (4)
  - Delusion [Recovered/Resolved]
  - Behaviour disorder [Recovering/Resolving]
  - Agitation [Recovering/Resolving]
  - Hyperprolactinaemia [Recovered/Resolved]
